FAERS Safety Report 6368136-6 (Version None)
Quarter: 2009Q3

REPORT INFORMATION
  Report Type: 
  Country: None (occurrence: None)
  Receive Date: 20090922
  Receipt Date: 20090428
  Transmission Date: 20100115
  Serious: Yes (Death)
  Sender: FDA-Public Use
  Company Number: US-ASTRAZENECA-2009UW10634

PATIENT
  Age: 46 Year
  Sex: Male

DRUGS (2)
  1. SEROQUEL [Suspect]
     Dosage: TOOK 15 TABLETS
     Route: 048
  2. ALCOHOL [Suspect]

REACTIONS (2)
  - COMPLETED SUICIDE [None]
  - MULTIPLE DRUG OVERDOSE [None]
